FAERS Safety Report 10868601 (Version 1)
Quarter: 2015Q1

REPORT INFORMATION
  Report Type: Spontaneous
  Country: US (occurrence: US)
  Receive Date: 20150225
  Receipt Date: 20150225
  Transmission Date: 20150721
  Serious: No
  Sender: FDA-Public Use
  Company Number: US-GILEAD-2015-0139153

PATIENT
  Age: 25 Year
  Sex: Female

DRUGS (1)
  1. HARVONI [Suspect]
     Active Substance: LEDIPASVIR\SOFOSBUVIR
     Indication: PRODUCT USED FOR UNKNOWN INDICATION
     Dosage: 1 UNKNOWN, QD
     Route: 048
     Dates: start: 20150125

REACTIONS (4)
  - Myalgia [Unknown]
  - Fatigue [Unknown]
  - Pain [Unknown]
  - Headache [Recovered/Resolved]
